FAERS Safety Report 7167864-2 (Version None)
Quarter: 2010Q4

REPORT INFORMATION
  Report Type: 
  Country: None (occurrence: None)
  Receive Date: 20101216
  Receipt Date: 20091218
  Transmission Date: 20110411
  Serious: No
  Sender: FDA-Public Use
  Company Number: US-TYCO HEALTHCARE/MALLINCKRODT-T200902355

PATIENT
  Sex: Female
  Weight: 113.38 kg

DRUGS (1)
  1. OXYCODONE HCL AND ACETAMINOPHEN [Suspect]
     Indication: PAIN
     Dosage: 1 OR 2 TABS TID
     Route: 048
     Dates: start: 20091210, end: 20091217

REACTIONS (6)
  - CHILLS [None]
  - CONSTIPATION [None]
  - FEELING ABNORMAL [None]
  - FOOD CRAVING [None]
  - MALAISE [None]
  - PAIN [None]
